FAERS Safety Report 8692247 (Version 3)
Quarter: 2013Q3

REPORT INFORMATION
  Report Type: Report from Study
  Country: US (occurrence: US)
  Receive Date: 20120730
  Receipt Date: 20130823
  Transmission Date: 20140515
  Serious: Yes (Hospitalization)
  Sender: FDA-Public Use
  Company Number: US-ACTELION-A-NJ2012-69240

PATIENT
  Age: 57 Year
  Sex: Female

DRUGS (13)
  1. TRACLEER [Suspect]
     Indication: PULMONARY ARTERIAL HYPERTENSION
     Dosage: 125 MG, BID
     Route: 048
     Dates: start: 2011
  2. COUMADIN [Suspect]
  3. TYVASO [Concomitant]
     Dosage: 0.6 MG, 9 PUFFS, Q6HRS
  4. PREDNISONE [Concomitant]
     Dosage: 5 MG, BID
     Route: 048
     Dates: start: 2005
  5. PREDNISONE [Concomitant]
     Dosage: 2.5 MG, QD
     Dates: start: 2005
  6. ALBUTEROL [Concomitant]
     Dosage: 80 MCG, PRN, 2 INHALATIONS AS NEEDED
     Dates: start: 2009
  7. PRILOSEC [Concomitant]
     Dosage: 20 MG, QD
     Dates: start: 2010
  8. BUMEX [Concomitant]
     Dosage: 2 MG, BID
     Dates: start: 2005
  9. ADCIRCA [Concomitant]
     Dosage: 40 MG, QD
     Dates: start: 2013
  10. TRAMADOL [Concomitant]
     Dosage: 50 MG, UNK
     Dates: start: 2010
  11. MAGNESIUM [Concomitant]
     Dosage: 400 UNK, QD
     Dates: start: 2005
  12. POTASSIUM [Concomitant]
     Dosage: 45 MEQ, TID
     Dates: start: 2007
  13. BENZONATATE [Concomitant]
     Dosage: 200 MG, PRN
     Dates: start: 2009

REACTIONS (10)
  - Atrial fibrillation [Not Recovered/Not Resolved]
  - Haemorrhage [Unknown]
  - Rectal haemorrhage [Recovered/Resolved]
  - Transfusion [Unknown]
  - Pneumonia [Recovered/Resolved]
  - Dyspnoea [Recovered/Resolved]
  - Pleural effusion [Recovered/Resolved]
  - Cardiac failure congestive [Not Recovered/Not Resolved]
  - Asthenia [Recovered/Resolved]
  - Dyspnoea exertional [Recovered/Resolved]
